FAERS Safety Report 5498311-4 (Version None)
Quarter: 2007Q4

REPORT INFORMATION
  Report Type: 
  Country: None (occurrence: None)
  Receive Date: 20071025
  Receipt Date: 20070430
  Transmission Date: 20080405
  Serious: No
  Sender: FDA-Public Use
  Company Number: A0649248A

PATIENT
  Age: 75 Year
  Sex: Male

DRUGS (9)
  1. ADVAIR DISKUS 100/50 [Suspect]
     Indication: WHEEZING
     Route: 055
  2. ASPIRIN [Concomitant]
  3. NORVASC [Concomitant]
  4. NEXIUM [Concomitant]
  5. LIPITOR [Concomitant]
  6. SPIRIVA [Concomitant]
  7. SOTALOL HYDROCHLORIDE [Concomitant]
  8. PLAVIX [Concomitant]
  9. MICARDIS [Concomitant]

REACTIONS (1)
  - WHEEZING [None]
